FAERS Safety Report 14230661 (Version 6)
Quarter: 2019Q1

REPORT INFORMATION
  Report Type: Spontaneous
  Country: AT (occurrence: AT)
  Receive Date: 20171128
  Receipt Date: 20190206
  Transmission Date: 20190417
  Serious: Yes (Hospitalization, Other)
  Sender: FDA-Public Use
  Company Number: AT-OTSUKA-2017_021130

PATIENT
  Age: 20 Year
  Sex: Male
  Weight: 85.5 kg

DRUGS (35)
  1. ABILIFY [Suspect]
     Active Substance: ARIPIPRAZOLE
     Dosage: 15 MG, QD (7.MG FROM 04-JUL-2016 TO UNKNOWN DATE IN 2016)
     Route: 048
     Dates: start: 2016, end: 20161122
  2. HALDOL [Suspect]
     Active Substance: HALOPERIDOL
     Indication: PRODUCT USED FOR UNKNOWN INDICATION
     Dosage: 20 MG, UNK
     Route: 048
     Dates: start: 20161123, end: 20161123
  3. AMPHETAMINE [Suspect]
     Active Substance: AMPHETAMINE
     Indication: PRODUCT USED FOR UNKNOWN INDICATION
     Dosage: UNK
     Route: 065
  4. HOVA [Concomitant]
     Active Substance: HERBALS\HOPS\VALERIAN
     Dosage: 4 DF, UNK
     Route: 048
     Dates: start: 20161209, end: 20161209
  5. MORPHINE [Concomitant]
     Active Substance: MORPHINE
     Indication: PRODUCT USED FOR UNKNOWN INDICATION
     Dosage: 40 DF, UNK
     Route: 048
  6. NOZINAN [Suspect]
     Active Substance: LEVOMEPROMAZINE
     Dosage: 50 DF, UNK (1 DF= 1 DROP)
     Route: 048
     Dates: start: 20161123, end: 20161123
  7. HALDOL [Suspect]
     Active Substance: HALOPERIDOL
     Dosage: 6 MG, UNK
     Route: 048
     Dates: start: 20161208, end: 20161208
  8. NOCTOR DRAGEES [Concomitant]
     Indication: PRODUCT USED FOR UNKNOWN INDICATION
     Dosage: 1 DF, UNK
     Route: 048
  9. MORPHIN [Suspect]
     Active Substance: MORPHINE
     Indication: PRODUCT USED FOR UNKNOWN INDICATION
     Dosage: UNK
     Route: 065
  10. HALOPERIDOL. [Suspect]
     Active Substance: HALOPERIDOL
     Dosage: 20 MG, UNK
     Route: 048
     Dates: start: 20161123, end: 20161211
  11. HALOPERIDOL. [Suspect]
     Active Substance: HALOPERIDOL
     Dosage: 40 DF, UNK (1 DF = 1 DROP)
     Route: 048
     Dates: start: 20161211, end: 20161211
  12. HOVA [Concomitant]
     Active Substance: HERBALS\HOPS\VALERIAN
     Indication: PRODUCT USED FOR UNKNOWN INDICATION
     Dosage: 2 DF, UNK
     Route: 048
     Dates: start: 20161122, end: 20161122
  13. NOZINAN [Suspect]
     Active Substance: LEVOMEPROMAZINE
     Dosage: 30 DF, UNK (1 DF= 1 DROP)
     Route: 048
     Dates: start: 20161202, end: 20161202
  14. NOZINAN [Suspect]
     Active Substance: LEVOMEPROMAZINE
     Dosage: 40 DF, UNK (1 DF= 1 DROP)
     Route: 048
     Dates: start: 20161204, end: 20161204
  15. HALDOL [Suspect]
     Active Substance: HALOPERIDOL
     Dosage: 4 MG, UNK
     Route: 048
     Dates: start: 20161211, end: 20161211
  16. METHAMPHETAMINE [Suspect]
     Active Substance: METHAMPHETAMINE
     Indication: PRODUCT USED FOR UNKNOWN INDICATION
     Dosage: UNK
     Route: 065
  17. HALOPERIDOL. [Suspect]
     Active Substance: HALOPERIDOL
     Indication: PRODUCT USED FOR UNKNOWN INDICATION
     Dosage: 50 DF, UNK (1 DF = 1 DROP)
     Route: 048
     Dates: start: 20161121, end: 20161121
  18. NOZINAN [Suspect]
     Active Substance: LEVOMEPROMAZINE
     Dosage: 40 DF, UNK (1 DF= 1 DROP)
     Route: 048
     Dates: start: 20161126, end: 20161127
  19. ZYPREXA [Suspect]
     Active Substance: OLANZAPINE
     Indication: PARANOIA
     Dosage: UNK
     Route: 065
  20. ABILIFY [Suspect]
     Active Substance: ARIPIPRAZOLE
     Indication: PRODUCT USED FOR UNKNOWN INDICATION
     Dosage: 7.5 MG, QD (7.MG FROM 04-JUL-2016 TO UNKNOWN DATE IN 2016)
     Route: 048
     Dates: start: 20160704
  21. ABILIFY [Suspect]
     Active Substance: ARIPIPRAZOLE
     Dosage: 7.5 MG, QD
     Route: 048
     Dates: end: 2016
  22. NOZINAN [Suspect]
     Active Substance: LEVOMEPROMAZINE
     Indication: PRODUCT USED FOR UNKNOWN INDICATION
     Dosage: 130 DF, UNK (1 DF= 1 DROP)
     Route: 048
     Dates: start: 20161122, end: 20161122
  23. NOZINAN [Suspect]
     Active Substance: LEVOMEPROMAZINE
     Dosage: 40 DF, UNK (1 DF= 1 DROP)
     Route: 048
     Dates: start: 20161124, end: 20161124
  24. ZYPREXA [Suspect]
     Active Substance: OLANZAPINE
     Dosage: 15 MG, UNK
     Route: 048
     Dates: start: 20161125, end: 20161205
  25. HOVA [Concomitant]
     Active Substance: HERBALS\HOPS\VALERIAN
     Dosage: 2 DF, UNK
     Route: 048
     Dates: start: 20161124, end: 20161124
  26. NOZINAN [Suspect]
     Active Substance: LEVOMEPROMAZINE
     Dosage: 40 DF, UNK (1 DF= 1 DROP)
     Route: 048
     Dates: start: 20161206, end: 20161206
  27. OLANZAPINE. [Suspect]
     Active Substance: OLANZAPINE
     Indication: PRODUCT USED FOR UNKNOWN INDICATION
     Dosage: UNK
     Route: 065
  28. HOVA [Concomitant]
     Active Substance: HERBALS\HOPS\VALERIAN
     Dosage: 2 DF, UNK
     Route: 048
     Dates: start: 20161201, end: 20161205
  29. ATARAX [Concomitant]
     Active Substance: HYDROXYZINE HYDROCHLORIDE
     Dosage: 50 MG, UNK
     Route: 065
  30. NOZINAN [Suspect]
     Active Substance: LEVOMEPROMAZINE
     Dosage: 70 DF, UNK (1 DF= 1 DROP)
     Route: 048
     Dates: start: 20161125, end: 20161125
  31. HALDOL [Suspect]
     Active Substance: HALOPERIDOL
     Indication: AGITATION
     Dosage: 5 MG, UNK
     Route: 048
     Dates: start: 20161121, end: 20161122
  32. HALDOL [Suspect]
     Active Substance: HALOPERIDOL
     Dosage: 5 MG, UNK
     Route: 048
     Dates: start: 20161210, end: 20161210
  33. ZYPREXA [Suspect]
     Active Substance: OLANZAPINE
     Indication: PRODUCT USED FOR UNKNOWN INDICATION
     Dosage: 5 MG, UNK
     Route: 048
     Dates: start: 20161124, end: 20161124
  34. ATARAX [Concomitant]
     Active Substance: HYDROXYZINE HYDROCHLORIDE
     Indication: PRODUCT USED FOR UNKNOWN INDICATION
     Dosage: 25 MG, UNK
     Route: 065
  35. TEMESTA [LORAZEPAM] [Concomitant]
     Active Substance: LORAZEPAM
     Indication: AGITATION
     Dosage: 10 MG, UNK
     Route: 065

REACTIONS (9)
  - Toxicity to various agents [Unknown]
  - Oropharyngeal spasm [Recovered/Resolved]
  - Psychotic symptom [Not Recovered/Not Resolved]
  - Pharyngeal dyskinesia [Recovered/Resolved]
  - Muscle spasms [Recovered/Resolved]
  - Dysphagia [Recovered/Resolved]
  - Suicidal ideation [Unknown]
  - Intentional overdose [Unknown]
  - Liver function test increased [Recovered/Resolved]

NARRATIVE: CASE EVENT DATE: 201607
